FAERS Safety Report 21399808 (Version 2)
Quarter: 2023Q1

REPORT INFORMATION
  Report Type: Report from Study
  Country: DE (occurrence: DE)
  Receive Date: 20221001
  Receipt Date: 20230111
  Transmission Date: 20230418
  Serious: Yes (Hospitalization)
  Sender: FDA-Public Use
  Company Number: DE-JNJFOC-20170718147

PATIENT
  Age: 55 Year
  Sex: Male
  Weight: 85 kg

DRUGS (20)
  1. IBRUTINIB [Suspect]
     Active Substance: IBRUTINIB
     Indication: Follicular lymphoma
     Route: 048
     Dates: end: 20170720
  2. IBRUTINIB [Suspect]
     Active Substance: IBRUTINIB
     Indication: Follicular lymphoma
     Route: 048
     Dates: start: 20170717, end: 20170719
  3. IBRUTINIB [Suspect]
     Active Substance: IBRUTINIB
     Indication: Follicular lymphoma
     Route: 048
     Dates: start: 20170515, end: 20170710
  4. OBINUTUZUMAB [Concomitant]
     Active Substance: OBINUTUZUMAB
     Indication: Follicular lymphoma
     Route: 041
     Dates: start: 20170515
  5. SULFAMETHOXAZOLE\TRIMETHOPRIM [Concomitant]
     Active Substance: SULFAMETHOXAZOLE\TRIMETHOPRIM
     Indication: Infection prophylaxis
     Dosage: DOSAGE FORM: UNSPECIFIED
     Route: 065
     Dates: start: 20170515
  6. SULFAMETHOXAZOLE\TRIMETHOPRIM [Concomitant]
     Active Substance: SULFAMETHOXAZOLE\TRIMETHOPRIM
     Indication: Infection prophylaxis
     Dosage: DOSAGE FORM: UNSPECIFIED
     Route: 065
     Dates: start: 20170515
  7. ACYCLOVIR SODIUM [Concomitant]
     Active Substance: ACYCLOVIR SODIUM
     Indication: Infection prophylaxis
     Dosage: DOSAGE FORM: UNSPECIFIED
     Route: 065
     Dates: start: 20170515
  8. ACYCLOVIR SODIUM [Concomitant]
     Active Substance: ACYCLOVIR SODIUM
     Indication: Infection prophylaxis
     Dosage: DOSAGE FORM: UNSPECIFIED
     Route: 065
     Dates: start: 20170515
  9. ALLOPURINOL [Concomitant]
     Active Substance: ALLOPURINOL
     Indication: Blood uric acid increased
     Dosage: DOSAGE FORM: UNSPECIFIED
     Route: 065
     Dates: start: 20170515
  10. ALLOPURINOL [Concomitant]
     Active Substance: ALLOPURINOL
     Indication: Blood uric acid increased
     Dosage: DOSAGE FORM: UNSPECIFIED
     Route: 065
     Dates: start: 20170515
  11. ACETAMINOPHEN [Concomitant]
     Active Substance: ACETAMINOPHEN
     Indication: Prophylaxis
     Dosage: DOSAGE FORM: UNSPECIFIED
     Route: 065
     Dates: start: 20170515
  12. ACETAMINOPHEN [Concomitant]
     Active Substance: ACETAMINOPHEN
     Indication: Prophylaxis
     Dosage: DOSAGE FORM: UNSPECIFIED
     Route: 065
     Dates: start: 20170515
  13. SODIUM CHLORIDE [Concomitant]
     Active Substance: SODIUM CHLORIDE
     Indication: Prophylaxis
     Dosage: DOSAGE FORM: UNSPECIFIED
     Route: 065
     Dates: start: 20170515
  14. SODIUM CHLORIDE [Concomitant]
     Active Substance: SODIUM CHLORIDE
     Indication: Prophylaxis
     Dosage: DOSAGE FORM: UNSPECIFIED
     Route: 065
     Dates: start: 20170515
  15. CLEMASTINE [Concomitant]
     Active Substance: CLEMASTINE
     Indication: Prophylaxis
     Dosage: DOSAGE FORM: UNSPECIFIED
     Route: 065
     Dates: start: 20170515
  16. CLEMASTINE [Concomitant]
     Active Substance: CLEMASTINE
     Indication: Prophylaxis
     Dosage: DOSAGE FORM: UNSPECIFIED
     Route: 065
     Dates: start: 20170515
  17. ZANTAC [Concomitant]
     Active Substance: RANITIDINE HYDROCHLORIDE
     Indication: Prophylaxis
     Dosage: DOSAGE FORM: UNSPECIFIED
     Route: 065
     Dates: start: 20150515
  18. ZANTAC [Concomitant]
     Active Substance: RANITIDINE HYDROCHLORIDE
     Indication: Prophylaxis
     Dosage: DOSAGE FORM: UNSPECIFIED
     Route: 065
     Dates: start: 20150515
  19. URSODIOL [Concomitant]
     Active Substance: URSODIOL
     Indication: Product used for unknown indication
     Dosage: DOSAGE FORM: UNSPECIFIED
     Route: 065
     Dates: start: 20170720
  20. URSODIOL [Concomitant]
     Active Substance: URSODIOL
     Indication: Product used for unknown indication
     Dosage: DOSAGE FORM: UNSPECIFIED
     Route: 065
     Dates: start: 20170720

REACTIONS (2)
  - General physical health deterioration [Recovered/Resolved]
  - Reactive gastropathy [Recovered/Resolved]

NARRATIVE: CASE EVENT DATE: 20170720
